FAERS Safety Report 14585818 (Version 6)
Quarter: 2018Q2

REPORT INFORMATION
  Report Type: Spontaneous
  Country: US (occurrence: US)
  Receive Date: 20180301
  Receipt Date: 20180622
  Transmission Date: 20180711
  Serious: Yes (Other)
  Sender: FDA-Public Use
  Company Number: US-PFIZER INC-2018083422

PATIENT
  Age: 74 Year
  Sex: Female
  Weight: 35.83 kg

DRUGS (4)
  1. IBRANCE [Suspect]
     Active Substance: PALBOCICLIB
     Dosage: 100 MG, CYCLIC (DAY 1-21 Q28DAYS)
     Route: 048
  2. IBRANCE [Suspect]
     Active Substance: PALBOCICLIB
     Dosage: 75 MG, CYCLIC (D1-21 Q28 DAYS)
     Route: 048
  3. IBRANCE [Suspect]
     Active Substance: PALBOCICLIB
     Indication: BREAST CANCER METASTATIC
     Dosage: 100 MG, CYCLIC (DAY 1-21 Q28DAYS)
     Route: 048
     Dates: start: 20180217
  4. IBRANCE [Suspect]
     Active Substance: PALBOCICLIB
     Dosage: 75 MG, CYCLIC (D1-21 Q28 DAYS)
     Route: 048

REACTIONS (11)
  - Drug dose omission [Unknown]
  - Somnolence [Unknown]
  - Diarrhoea [Unknown]
  - Decreased appetite [Unknown]
  - Pneumonia [Unknown]
  - Chest pain [Unknown]
  - Incontinence [Unknown]
  - Weight decreased [Unknown]
  - Fatigue [Unknown]
  - White blood cell count decreased [Unknown]
  - Nausea [Unknown]

NARRATIVE: CASE EVENT DATE: 201802
